FAERS Safety Report 17567409 (Version 2)
Quarter: 2020Q2

REPORT INFORMATION
  Report Type: Spontaneous
  Country: US (occurrence: US)
  Receive Date: 20200320
  Receipt Date: 20200415
  Transmission Date: 20200713
  Serious: Yes (Hospitalization)
  Sender: FDA-Public Use
  Company Number: US-VERTEX PHARMACEUTICALS-2020-004904

PATIENT
  Age: 63 Year
  Sex: Male

DRUGS (2)
  1. SYMDEKO [Suspect]
     Active Substance: IVACAFTOR\TEZACAFTOR
     Indication: CYSTIC FIBROSIS
     Dosage: 100MG TEZACAFTOR/150MG IVACAFTOR; 150MG IVACAFTOR, BID
     Route: 048
     Dates: start: 201803
  2. TOBI PODHALER [Suspect]
     Active Substance: TOBRAMYCIN

REACTIONS (8)
  - Nausea [Unknown]
  - Diarrhoea [Unknown]
  - Flushing [Unknown]
  - Infective pulmonary exacerbation of cystic fibrosis [Unknown]
  - Productive cough [Unknown]
  - Headache [Unknown]
  - Kidney infection [Unknown]
  - Upper respiratory tract infection [Unknown]

NARRATIVE: CASE EVENT DATE: 201908
